FAERS Safety Report 7549447-5 (Version None)
Quarter: 2011Q2

REPORT INFORMATION
  Report Type: 
  Country: None (occurrence: None)
  Receive Date: 20110615
  Receipt Date: 20041024
  Transmission Date: 20111010
  Serious: Yes (Other)
  Sender: FDA-Public Use
  Company Number: PHFR2004GB03969

PATIENT
  Sex: Female

DRUGS (2)
  1. ALCOHOL [Suspect]
  2. CLOZAPINE [Suspect]
     Indication: SCHIZOPHRENIA
     Route: 048
     Dates: start: 20040916

REACTIONS (2)
  - DRUG ABUSE [None]
  - ALCOHOL ABUSE [None]
